FAERS Safety Report 15339905 (Version 1)
Quarter: 2018Q3

REPORT INFORMATION
  Report Type: Spontaneous
  Country: US (occurrence: US)
  Receive Date: 20180827
  Receipt Date: 20180827
  Transmission Date: 20181010
  Serious: No
  Sender: FDA-Public Use
  Company Number: None

PATIENT
  Age: 58 Year
  Sex: Female

DRUGS (1)
  1. ENBREL [Suspect]
     Active Substance: ETANERCEPT
     Indication: RHEUMATOID ARTHRITIS
     Route: 058
     Dates: start: 20170803

REACTIONS (4)
  - Arrhythmia [None]
  - Lip ulceration [None]
  - Pharyngeal ulceration [None]
  - Gingival ulceration [None]

NARRATIVE: CASE EVENT DATE: 20180402
